FAERS Safety Report 18824673 (Version 3)
Quarter: 2022Q3

REPORT INFORMATION
  Report Type: Spontaneous
  Country: CA (occurrence: CA)
  Receive Date: 20210202
  Receipt Date: 20220712
  Transmission Date: 20221027
  Serious: Yes (Other)
  Sender: FDA-Public Use
  Company Number: CA-GLAXOSMITHKLINE-CA2021AMR020390

PATIENT

DRUGS (4)
  1. SORIATANE [Suspect]
     Active Substance: ACITRETIN
     Indication: Product used for unknown indication
     Dosage: 10 MG, UNK
  2. CYCLOSPORINE [Suspect]
     Active Substance: CYCLOSPORINE
     Indication: Refraction disorder
     Dosage: 100 MG, QD
     Route: 048
  3. COSENTYX [Suspect]
     Active Substance: SECUKINUMAB
     Indication: Psoriasis
     Dosage: 300 MG, WE
     Route: 058
  4. METHOTREXATE [Concomitant]
     Active Substance: METHOTREXATE
     Indication: Product used for unknown indication
     Dosage: UNK
     Route: 048

REACTIONS (3)
  - Hepatic fibrosis [Unknown]
  - Pruritus [Unknown]
  - Psoriasis [Unknown]
